FAERS Safety Report 26143615 (Version 1)
Quarter: 2025Q4

REPORT INFORMATION
  Report Type: Spontaneous
  Country: US (occurrence: US)
  Receive Date: 20251211
  Receipt Date: 20251211
  Transmission Date: 20260117
  Serious: Yes (Other)
  Sender: ROCHE
  Company Number: US-ROCHE-10000456558

PATIENT
  Age: 73 Year
  Sex: Female

DRUGS (6)
  1. OBINUTUZUMAB [Suspect]
     Active Substance: OBINUTUZUMAB
     Indication: Chronic lymphocytic leukaemia
     Dosage: CYCLE 1 DAY 1
  2. OBINUTUZUMAB [Suspect]
     Active Substance: OBINUTUZUMAB
     Dosage: CYCLE 1 DAY 2
  3. OBINUTUZUMAB [Suspect]
     Active Substance: OBINUTUZUMAB
  4. VENETOCLAX [Concomitant]
     Active Substance: VENETOCLAX
  5. VENETOCLAX [Concomitant]
     Active Substance: VENETOCLAX
     Dosage: APPROXIMATELY 13,000 MG
  6. RITUXIMAB [Concomitant]
     Active Substance: RITUXIMAB
     Indication: Immune thrombocytopenia

REACTIONS (1)
  - Pancytopenia [Unknown]
